FAERS Safety Report 8803173 (Version 1)
Quarter: 2012Q4

REPORT INFORMATION
  Report Type: 
  Country: GB (occurrence: GB)
  Receive Date: 20120924
  Receipt Date: 20120924
  Transmission Date: 20130627
  Serious: Yes (Hospitalization)
  Sender: FDA-Public Use
  Company Number: PHHO2011GB018871

PATIENT
  Age: 68 Year
  Sex: Male
  Weight: 92.7 kg

DRUGS (19)
  1. BLINDED ENALAPRIL [Suspect]
     Indication: CARDIAC FAILURE CHRONIC
     Dosage: Code not broken
     Route: 048
     Dates: start: 20110630, end: 20120826
  2. BLINDED LCZ696 [Suspect]
     Indication: CARDIAC FAILURE CHRONIC
     Dosage: Code not broken
     Route: 048
     Dates: start: 20110630, end: 20120826
  3. BLINDED NO TREATMENT RECEIVED [Suspect]
     Indication: CARDIAC FAILURE CHRONIC
     Dosage: Code not broken
     Route: 048
     Dates: start: 20110630, end: 20120826
  4. BLINDED ENALAPRIL [Suspect]
     Dosage: Code not broken
     Dates: start: 20120906, end: 20120913
  5. BLINDED LCZ696 [Suspect]
     Dosage: Code not broken
     Dates: start: 20120906, end: 20120913
  6. BLINDED NO TREATMENT RECEIVED [Suspect]
     Dosage: Code not broken
     Dates: start: 20120906, end: 20120913
  7. AMIODARONE [Concomitant]
     Indication: PROPHYLAXIS
     Dosage: 100 mg, QD
     Route: 048
     Dates: start: 20061025, end: 20120826
  8. AMIODARONE [Concomitant]
     Dosage: 300 mg, UNK
     Route: 042
     Dates: start: 20120827
  9. AMIODARONE [Concomitant]
     Dosage: 200 mg, BID
     Route: 048
     Dates: start: 20120829
  10. BISOPROLOL [Concomitant]
     Indication: PROPHYLAXIS
     Dosage: 5 mg, QD
     Route: 048
     Dates: start: 20110307
  11. BISOPROLOL [Concomitant]
     Dosage: 5 mg, BID
     Route: 048
     Dates: start: 20120827
  12. FUROSEMIDE [Concomitant]
     Indication: PROPHYLAXIS
     Dosage: 40 mg, QD
     Route: 048
     Dates: start: 20050826, end: 20120826
  13. FUROSEMIDE [Concomitant]
     Dosage: UNK
     Route: 048
     Dates: start: 20120826
  14. RANITIDINE [Concomitant]
     Indication: PROPHYLAXIS
     Dosage: 300 mg, QD
     Route: 048
     Dates: start: 20100908
  15. SIMVASTATIN [Concomitant]
     Indication: PROPHYLAXIS
     Dosage: 20 mg, QD
     Route: 048
     Dates: start: 20050826
  16. EPLERENONE [Concomitant]
     Indication: PROPHYLAXIS
     Dosage: 25 mg, QD
     Dates: start: 201201
  17. EPLERENONE [Concomitant]
     Dosage: 25 mg, QD
     Dates: start: 20120827
  18. WARFARIN [Concomitant]
     Indication: PROPHYLAXIS
     Dosage: 1 mg, UNK
     Dates: start: 201111
  19. WARFARIN [Concomitant]
     Dosage: UNK
     Dates: start: 20120827

REACTIONS (8)
  - Atrial tachycardia [Recovered/Resolved]
  - Lower respiratory tract infection [Recovered/Resolved]
  - Cardiac failure acute [Recovered/Resolved]
  - Cardiac failure chronic [Recovered/Resolved]
  - Ventricular tachycardia [Recovering/Resolving]
  - Pulmonary oedema [None]
  - Renal impairment [None]
  - Bundle branch block left [None]
